FAERS Safety Report 16414844 (Version 2)
Quarter: 2019Q4

REPORT INFORMATION
  Report Type: Spontaneous
  Country: US (occurrence: US)
  Receive Date: 20190611
  Receipt Date: 20191004
  Transmission Date: 20200122
  Serious: No
  Sender: FDA-Public Use
  Company Number: US-PFIZER INC-2019240956

PATIENT

DRUGS (1)
  1. RIFABUTIN. [Suspect]
     Active Substance: RIFABUTIN
     Dosage: UNK

REACTIONS (4)
  - Dysphagia [Unknown]
  - Product administration error [Unknown]
  - Crying [Unknown]
  - Throat irritation [Unknown]
